FAERS Safety Report 14166102 (Version 1)
Quarter: 2017Q4

REPORT INFORMATION
  Report Type: Spontaneous
  Country: US (occurrence: US)
  Receive Date: 20171107
  Receipt Date: 20171107
  Transmission Date: 20180321
  Serious: Yes (Other)
  Sender: FDA-Public Use
  Company Number: US-AKORN PHARMACEUTICALS-2017AKN01280

PATIENT
  Age: 21 Year
  Sex: Female
  Weight: 69.39 kg

DRUGS (5)
  1. LATUDA [Concomitant]
     Active Substance: LURASIDONE HYDROCHLORIDE
     Dosage: 30 MG, 1X/DAY
     Route: 048
  2. CLINDAMYCIN LOTION [Concomitant]
     Dosage: UNK, 2X/DAY
     Route: 061
  3. MYORISAN [Suspect]
     Active Substance: ISOTRETINOIN
     Indication: ACNE CYSTIC
     Dosage: 30 MG, 2X/DAY
     Route: 048
     Dates: start: 20170612, end: 20171022
  4. UNSPECIFIED FIBER SUPPLEMENT [Suspect]
     Active Substance: UNSPECIFIED INGREDIENT
     Dosage: 1000 MG, 1X/DAY
     Dates: start: 20171014
  5. LAMOTRIGINE. [Concomitant]
     Active Substance: LAMOTRIGINE
     Dosage: 450 MG, UNK
     Route: 048

REACTIONS (1)
  - Suicidal ideation [Recovered/Resolved]

NARRATIVE: CASE EVENT DATE: 20171021
